FAERS Safety Report 8399520-7 (Version None)
Quarter: 2012Q2

REPORT INFORMATION
  Report Type: 
  Country: None (occurrence: None)
  Receive Date: 20120531
  Receipt Date: 20120523
  Transmission Date: 20120825
  Serious: Yes (Other)
  Sender: FDA-Public Use
  Company Number: RS-MERCK-1205USA04462

PATIENT
  Age: 72 Year
  Sex: Female

DRUGS (3)
  1. FOSAMAX PLUS D [Suspect]
     Indication: OSTEOPOROSIS
     Route: 048
     Dates: start: 20120429, end: 20120506
  2. PRESOLOL (LABETALOL HYDROCHLORIDE) [Concomitant]
     Route: 065
  3. BROMAZEPAM [Concomitant]
     Dosage: OCCASIONALLY
     Route: 065

REACTIONS (5)
  - BONE PAIN [None]
  - MYALGIA [None]
  - MALAISE [None]
  - GAIT DISTURBANCE [None]
  - INFLUENZA LIKE ILLNESS [None]
